FAERS Safety Report 8573396-7 (Version None)
Quarter: 2012Q3

REPORT INFORMATION
  Report Type: 
  Country: None (occurrence: None)
  Receive Date: 20120806
  Receipt Date: 20120801
  Transmission Date: 20120928
  Serious: Yes (Life-Threatening, Hospitalization)
  Sender: FDA-Public Use
  Company Number: KR-ABBOTT-07P-090-0425676-00

PATIENT
  Age: 65 Year
  Sex: Male
  Weight: 68 kg

DRUGS (9)
  1. LAMIVUDINE [Concomitant]
     Indication: PROPHYLAXIS
     Dosage: 10MG DAILY
  2. SULFASALAZINE [Concomitant]
     Indication: PROPHYLAXIS
     Route: 048
     Dates: end: 20070911
  3. CYCLOSPORINE [Concomitant]
     Indication: PROPHYLAXIS
     Route: 048
  4. HYDROXYCHLOROQUINE SULFATE [Concomitant]
     Indication: PROPHYLAXIS
     Route: 048
     Dates: end: 20070911
  5. METHOTREXATE [Concomitant]
     Indication: DRUG THERAPY
     Dosage: 10 MG/WEEK
     Route: 048
  6. LAMIVUDINE [Concomitant]
     Indication: HEPATITIS B
  7. BUCILLAMINE [Concomitant]
     Indication: PROPHYLAXIS
     Route: 048
  8. ETODOLAC [Concomitant]
     Indication: PROPHYLAXIS
     Dosage: MICRONIZED
     Route: 048
     Dates: end: 20070911
  9. HUMIRA [Suspect]
     Indication: RHEUMATOID ARTHRITIS
     Route: 058
     Dates: start: 20070913, end: 20071122

REACTIONS (2)
  - PNEUMONIA [None]
  - COLITIS [None]
